FAERS Safety Report 23422105 (Version 2)
Quarter: 2024Q1

REPORT INFORMATION
  Report Type: Spontaneous
  Country: US (occurrence: US)
  Receive Date: 20240119
  Receipt Date: 20240222
  Transmission Date: 20240410
  Serious: Yes (Other)
  Sender: FDA-Public Use
  Company Number: US-002147023-NVSC2024US009047

PATIENT
  Age: 25 Year
  Sex: Male

DRUGS (3)
  1. EVEROLIMUS [Suspect]
     Active Substance: EVEROLIMUS
     Indication: Neurofibromatosis
     Dosage: 10 MG, QD
     Route: 065
  2. SELUMETINIB [Suspect]
     Active Substance: SELUMETINIB
     Indication: Neurofibromatosis
     Dosage: 25 MG/KG, BID
     Route: 065
  3. SELUMETINIB [Suspect]
     Active Substance: SELUMETINIB
     Dosage: 25 MG/KG, BID
     Route: 065

REACTIONS (3)
  - Rash maculo-papular [Unknown]
  - Stomatitis [Unknown]
  - Product use in unapproved indication [Unknown]
